FAERS Safety Report 6895568-X (Version None)
Quarter: 2010Q3

REPORT INFORMATION
  Report Type: 
  Country: None (occurrence: None)
  Receive Date: 20100802
  Receipt Date: 20100728
  Transmission Date: 20110219
  Serious: Yes (Other)
  Sender: FDA-Public Use
  Company Number: PR-BRISTOL-MYERS SQUIBB COMPANY-15214851

PATIENT
  Age: 64 Year
  Sex: Female

DRUGS (4)
  1. COUMADIN [Suspect]
     Indication: RECTAL HAEMORRHAGE
     Dosage: 2.5MG THEN 3MG,4MG
  2. DIGOXIN [Concomitant]
  3. TOPROL-XL [Concomitant]
  4. FOLIC ACID [Concomitant]

REACTIONS (2)
  - RECTAL HAEMORRHAGE [None]
  - WEIGHT DECREASED [None]
